FAERS Safety Report 6868783-9 (Version None)
Quarter: 2010Q3

REPORT INFORMATION
  Report Type: 
  Country: None (occurrence: None)
  Receive Date: 20100722
  Receipt Date: 20080821
  Transmission Date: 20110219
  Serious: No
  Sender: FDA-Public Use
  Company Number: US-PFIZER INC-2008047330

PATIENT
  Sex: Male
  Weight: 88.45 kg

DRUGS (10)
  1. CHANTIX [Suspect]
     Indication: SMOKING CESSATION THERAPY
     Route: 048
     Dates: start: 20070531
  2. XANAX [Concomitant]
  3. ATENOLOL [Concomitant]
  4. PLAVIX [Concomitant]
  5. VYTORIN [Concomitant]
  6. DILTIAZEM HYDROCHLORIDE [Concomitant]
  7. ANDROGEL [Concomitant]
  8. GLYBURIDE [Concomitant]
  9. METFORMIN [Concomitant]
  10. LISINOPRIL [Concomitant]

REACTIONS (1)
  - FEELING ABNORMAL [None]
